FAERS Safety Report 8796244 (Version 1)
Quarter: 2012Q4

REPORT INFORMATION
  Report Type: 
  Country: US (occurrence: US)
  Receive Date: 20120920
  Receipt Date: 20120920
  Transmission Date: 20130627
  Serious: Yes (Hospitalization)
  Sender: FDA-Public Use
  Company Number: US-BAYER-2012-096651

PATIENT
  Age: 24 Year
  Sex: Female
  Weight: 108.84 kg

DRUGS (16)
  1. YASMIN [Suspect]
  2. LEVOTHYROXINE [Concomitant]
     Dosage: 25 mcg; 0.2 mg
  3. HYCOCLEAR TUSS [Concomitant]
     Dosage: UNK
  4. LEVAQUIN [Concomitant]
     Dosage: 500 mg, UNK
  5. ALBUTEROL [Concomitant]
     Dosage: 90 ?g, UNK
  6. BROMAXEFED DM SYRUP [Concomitant]
  7. SYNTHROID [Concomitant]
  8. TRICOR [Concomitant]
     Dosage: 145 mg, daily
  9. MORPHINE [Concomitant]
     Indication: PAIN
  10. REGLAN [Concomitant]
  11. PERCOCET [Concomitant]
  12. DILAUDID [Concomitant]
  13. PHENERGAN [Concomitant]
  14. AMOXICILLIN [Concomitant]
  15. CRANTEX [Concomitant]
  16. LORTAB [Concomitant]
     Indication: PAIN

REACTIONS (2)
  - Deep vein thrombosis [None]
  - Pulmonary embolism [None]
